FAERS Safety Report 4744479-4 (Version None)
Quarter: 2005Q3

REPORT INFORMATION
  Report Type: 
  Country: None (occurrence: None)
  Receive Date: 20050809
  Receipt Date: 20050728
  Transmission Date: 20060218
  Serious: Yes (Other)
  Sender: FDA-Public Use
  Company Number: 2005108188

PATIENT
  Age: 17 Year
  Sex: Female
  Weight: 68.0396 kg

DRUGS (1)
  1. BENADRYL [Suspect]
     Indication: HYPERSENSITIVITY
     Dosage: ORAL
     Route: 048

REACTIONS (2)
  - DYSPNOEA [None]
  - REACTION TO PRESERVATIVES [None]
